FAERS Safety Report 24322465 (Version 1)
Quarter: 2024Q3

REPORT INFORMATION
  Report Type: Spontaneous
  Country: US (occurrence: US)
  Receive Date: 20240916
  Receipt Date: 20240916
  Transmission Date: 20241017
  Serious: Yes (Other)
  Sender: JOHNSON AND JOHNSON
  Company Number: US-JNJFOC-20240925941

PATIENT

DRUGS (3)
  1. ZYRTEC [Suspect]
     Active Substance: CETIRIZINE HYDROCHLORIDE
     Indication: Allergy to animal
     Route: 065
     Dates: start: 2020
  2. MAGNESIUM [Concomitant]
     Active Substance: MAGNESIUM
     Indication: Migraine
     Dosage: 400 MILLIGRAMS DAILY AND THEN TAPERED TO 250.
     Route: 065
  3. IMITREX [Concomitant]
     Active Substance: SUMATRIPTAN SUCCINATE
     Indication: Headache
     Route: 065

REACTIONS (3)
  - Drug dependence [Unknown]
  - Withdrawal syndrome [Unknown]
  - Pruritus [Unknown]
